FAERS Safety Report 15708598 (Version 2)
Quarter: 2019Q3

REPORT INFORMATION
  Report Type: Spontaneous
  Country: CA (occurrence: CA)
  Receive Date: 20181211
  Receipt Date: 20190712
  Transmission Date: 20191004
  Serious: Yes (Other)
  Sender: FDA-Public Use
  Company Number: CA-TEVA-2018-CA-987175

PATIENT
  Age: 62 Year
  Sex: Female
  Weight: 58 kg

DRUGS (8)
  1. NOVO-RAMIPRIL [Suspect]
     Active Substance: RAMIPRIL
     Indication: HYPERTENSION
     Route: 048
  2. ESTROGEL [Concomitant]
     Active Substance: ESTRADIOL
  3. TEVA-RAMIPRIL [Suspect]
     Active Substance: RAMIPRIL
     Route: 048
  4. MACROGOL [Concomitant]
     Active Substance: POLYETHYLENE GLYCOLS
  5. TEVA-RAMIPRIL [Suspect]
     Active Substance: RAMIPRIL
     Indication: HYPERTENSION
     Route: 048
  6. LAX-A-DAY [Concomitant]
  7. NOVO-RAMIPRIL [Suspect]
     Active Substance: RAMIPRIL
     Route: 048
  8. MACROBID [Concomitant]
     Active Substance: NITROFURANTOIN\NITROFURANTOIN MONOHYDRATE

REACTIONS (2)
  - Breast pain [Recovered/Resolved]
  - Breast enlargement [Recovered/Resolved]
